FAERS Safety Report 20706458 (Version 1)
Quarter: 2022Q2

REPORT INFORMATION
  Report Type: 
  Country: IT (occurrence: IT)
  Receive Date: 20220413
  Receipt Date: 20220413
  Transmission Date: 20220721
  Serious: Yes (Other)
  Sender: FDA-Public Use
  Company Number: IT-Teikoku Pharma USA-TPU2022-00435

PATIENT
  Age: 85 Year
  Sex: Male

DRUGS (2)
  1. LIDOCAINE [Suspect]
     Active Substance: LIDOCAINE
     Indication: Arthralgia
     Route: 065
     Dates: start: 20220401, end: 20220401
  2. COMIRNATY [Concomitant]
     Active Substance: TOZINAMERAN

REACTIONS (1)
  - Syncope [Recovered/Resolved]

NARRATIVE: CASE EVENT DATE: 20220401
